FAERS Safety Report 7009208-2 (Version None)
Quarter: 2010Q3

REPORT INFORMATION
  Report Type: 
  Country: None (occurrence: None)
  Receive Date: 20100923
  Receipt Date: 20100916
  Transmission Date: 20110219
  Serious: Yes (Hospitalization, Disabling, Other)
  Sender: FDA-Public Use
  Company Number: BR-BAYER-200822486LA

PATIENT
  Age: 60 Year
  Sex: Female

DRUGS (7)
  1. BETAFERON [Suspect]
     Indication: MULTIPLE SCLEROSIS
     Dosage: BETAJECT
     Route: 058
     Dates: start: 19990101, end: 20100801
  2. MANTIDAN [Concomitant]
     Indication: MUSCLE TWITCHING
     Dosage: TOTAL DAILY DOSE: 100 MG  UNIT DOSE: 100 MG
     Route: 048
  3. ARADOIS [Concomitant]
     Indication: HYPERTENSION
     Dosage: TOTAL DAILY DOSE: 50 MG  UNIT DOSE: 50 MG
     Route: 048
  4. ALLEGRA [Concomitant]
     Indication: HYPERSENSITIVITY
     Route: 048
  5. SERTRALINE HYDROCHLORIDE [Concomitant]
     Indication: DEPRESSION
     Route: 048
  6. ANTIHISTAMINES [Concomitant]
     Indication: PREMEDICATION
     Route: 048
  7. TYLENOL [Concomitant]
     Indication: PREMEDICATION
     Route: 048

REACTIONS (16)
  - ABASIA [None]
  - CHOKING [None]
  - CONSTIPATION [None]
  - COORDINATION ABNORMAL [None]
  - FALL [None]
  - FATIGUE [None]
  - HEAD INJURY [None]
  - HYPERTENSION [None]
  - MALAISE [None]
  - MOTOR DYSFUNCTION [None]
  - MOVEMENT DISORDER [None]
  - MULTIPLE SCLEROSIS [None]
  - PAIN [None]
  - PYREXIA [None]
  - SEPSIS [None]
  - URINARY TRACT INFECTION [None]
